FAERS Safety Report 6343737-X (Version None)
Quarter: 2009Q3

REPORT INFORMATION
  Report Type: 
  Country: None (occurrence: None)
  Receive Date: 20090908
  Receipt Date: 20090831
  Transmission Date: 20100115
  Serious: Yes (Hospitalization)
  Sender: FDA-Public Use
  Company Number: A0805937A

PATIENT
  Sex: Female

DRUGS (6)
  1. SERETIDE [Suspect]
     Indication: FATIGUE
     Dosage: 1PUFF TWICE PER DAY
     Route: 055
     Dates: start: 20080801
  2. AMINOPHYLLINE [Concomitant]
     Dosage: 1TAB THREE TIMES PER DAY
     Route: 048
     Dates: start: 20080801
  3. AMLODIPINE [Concomitant]
     Dosage: 3TAB PER DAY
     Route: 048
     Dates: start: 20090501
  4. OMEPRAZOLE [Concomitant]
     Dosage: 20MG TWICE PER DAY
     Dates: start: 20080801
  5. LORATADINE [Concomitant]
     Dosage: 1TAB AT NIGHT
     Route: 048
     Dates: start: 20080801
  6. AMITRIPTYLINE [Concomitant]
     Dosage: 25MG AT NIGHT
     Dates: start: 20080801

REACTIONS (2)
  - DYSPNOEA [None]
  - FATIGUE [None]
